FAERS Safety Report 9883596 (Version 2)
Quarter: 2014Q1

REPORT INFORMATION
  Report Type: Spontaneous
  Country: US (occurrence: US)
  Receive Date: 20140210
  Receipt Date: 20140327
  Transmission Date: 20141002
  Serious: Yes (Death, Life-Threatening)
  Sender: FDA-Public Use
  Company Number: US-BRISTOL-MYERS SQUIBB COMPANY-20130993

PATIENT
  Age: 63 Year
  Sex: Male
  Weight: 96.6 kg

DRUGS (13)
  1. BYETTA [Suspect]
     Indication: TYPE 2 DIABETES MELLITUS
     Route: 058
     Dates: start: 20100127
  2. NORVASC [Concomitant]
  3. TOPROL XL [Concomitant]
     Dosage: TAB
  4. LISINOPRIL [Concomitant]
     Dosage: TAB
  5. PROTONIX [Concomitant]
     Dosage: ENTERIC COATED TABLET
  6. NASONEX [Concomitant]
     Dosage: 50 MCG/INH:2 SPRAY(S) QHS
     Route: 055
  7. PLAVIX [Concomitant]
  8. ZOCOR [Concomitant]
     Dosage: TAB
  9. LEXAPRO [Concomitant]
     Dosage: TAB
  10. GLIMEPIRIDE [Concomitant]
  11. METFORMIN [Concomitant]
  12. THERAGRAN-M [Concomitant]
  13. ASPIRIN [Concomitant]

REACTIONS (2)
  - Pancreatic carcinoma [Fatal]
  - Septic shock [Unknown]
